FAERS Safety Report 8963198 (Version 1)
Quarter: 2012Q4

REPORT INFORMATION
  Report Type: 
  Country: CA (occurrence: US)
  Receive Date: 20121213
  Receipt Date: 20121213
  Transmission Date: 20130627
  Serious: Yes (Death)
  Sender: FDA-Public Use
  Company Number: CA-OTSUKA-US-2012-11763

PATIENT

DRUGS (13)
  1. BUSULFEX [Suspect]
     Dosage: 12 mg/kg, UNK
     Route: 065
  2. CARBOPLATIN [Suspect]
     Route: 042
  3. CISPLATIN [Suspect]
     Route: 065
  4. CYCLOPHOSPHAMIDE [Suspect]
     Dosage: 2000 mg/m2, qd
     Route: 042
  5. DOXORUBICIN [Suspect]
  6. ETOPOSIDE [Suspect]
     Route: 065
  7. FLUDARA [Suspect]
     Route: 042
  8. GRANULOCYTE COLONY STIMULATING FACTOR [Suspect]
     Route: 065
  9. IFOSFAMIDE [Suspect]
     Dosage: 250 mg/m2, UNK
     Route: 042
  10. PREDNISONE [Suspect]
     Route: 065
  11. RITUXAN [Suspect]
     Route: 043
  12. VINCRISTINE SULFATE [Suspect]
     Route: 065
  13. ZEVALIN [Suspect]
     Route: 065

REACTIONS (3)
  - Meningitis tuberculous [Fatal]
  - Progressive multifocal leukoencephalopathy [Fatal]
  - Sepsis [Fatal]
